FAERS Safety Report 24413612 (Version 1)
Quarter: 2024Q4

REPORT INFORMATION
  Report Type: Spontaneous
  Country: CH (occurrence: CH)
  Receive Date: 20241008
  Receipt Date: 20241008
  Transmission Date: 20250114
  Serious: Yes (Other)
  Sender: NOVARTIS
  Company Number: None

PATIENT
  Age: 71 Year
  Sex: Male

DRUGS (1)
  1. CYCLOSPORINE [Suspect]
     Active Substance: CYCLOSPORINE
     Indication: Graft versus host disease
     Dosage: 175 MG, Q12H (1-0-1)
     Route: 048
     Dates: start: 202303

REACTIONS (1)
  - Toxic leukoencephalopathy [Unknown]

NARRATIVE: CASE EVENT DATE: 20240618
